FAERS Safety Report 25505926 (Version 2)
Quarter: 2025Q3

REPORT INFORMATION
  Report Type: Spontaneous
  Country: US (occurrence: US)
  Receive Date: 20250702
  Receipt Date: 20250813
  Transmission Date: 20251020
  Serious: No
  Sender: TAKEDA
  Company Number: US-TAKEDA-2025TUS059137

PATIENT
  Sex: Male

DRUGS (2)
  1. NINLARO [Suspect]
     Active Substance: IXAZOMIB CITRATE
     Indication: Product used for unknown indication
  2. NINLARO [Suspect]
     Active Substance: IXAZOMIB CITRATE

REACTIONS (4)
  - No adverse event [Unknown]
  - Product dose omission in error [Unknown]
  - Product physical issue [Unknown]
  - Accidental exposure to product [Unknown]
